FAERS Safety Report 8965418 (Version 2)
Quarter: 2012Q4

REPORT INFORMATION
  Report Type: 
  Country: US (occurrence: US)
  Receive Date: 20121214
  Receipt Date: 20121226
  Transmission Date: 20130627
  Serious: Yes (Other)
  Sender: FDA-Public Use
  Company Number: US-PFIZER INC-2012316339

PATIENT
  Age: 50 Year
  Sex: Female
  Weight: 96.15 kg

DRUGS (3)
  1. LYRICA [Suspect]
     Indication: NEUROPATHY
     Dosage: 100 mg, 3x/day
     Route: 048
  2. PROTONIX [Suspect]
     Indication: ULCER
     Dosage: 40 mg, 1x/day
     Route: 048
  3. SYNTHROID [Concomitant]
     Indication: UNSPECIFIED DISORDER OF THYROID
     Dosage: UNK

REACTIONS (4)
  - Spinal fracture [Unknown]
  - Fall [Unknown]
  - Neck injury [Unknown]
  - Limb injury [Unknown]
